FAERS Safety Report 9316516 (Version 1)
Quarter: 2013Q2

REPORT INFORMATION
  Report Type: Spontaneous
  Country: US (occurrence: US)
  Receive Date: 20130530
  Receipt Date: 20130530
  Transmission Date: 20140414
  Serious: No
  Sender: FDA-Public Use
  Company Number: US-PFIZER INC-2013163359

PATIENT
  Age: 95 Year
  Sex: Male
  Weight: 61.22 kg

DRUGS (2)
  1. LYRICA [Suspect]
     Indication: PAIN IN EXTREMITY
     Dosage: 25 MG, 1X/DAY
     Dates: start: 201305
  2. LYRICA [Suspect]
     Indication: LOCAL SWELLING

REACTIONS (3)
  - Wrong technique in drug usage process [Unknown]
  - Off label use [Unknown]
  - Abnormal dreams [Unknown]
